FAERS Safety Report 22044797 (Version 1)
Quarter: 2023Q1

REPORT INFORMATION
  Report Type: Spontaneous
  Country: US (occurrence: None)
  Receive Date: 20230227
  Receipt Date: 20230227
  Transmission Date: 20230417
  Serious: No
  Sender: FDA-Public Use
  Company Number: None

PATIENT

DRUGS (3)
  1. VARENICLINE TARTRATE [Suspect]
     Active Substance: VARENICLINE TARTRATE
     Route: 048
  2. VARENICLINE TARTRATE [Suspect]
     Active Substance: VARENICLINE TARTRATE
     Route: 048
  3. EPIC-TEMP [Suspect]
     Active Substance: BENZALKONIUM CHLORIDE

REACTIONS (3)
  - Intercepted product selection error [None]
  - Intercepted product dispensing error [None]
  - Wrong technique in product usage process [None]
